FAERS Safety Report 19562551 (Version 3)
Quarter: 2021Q3

REPORT INFORMATION
  Report Type: Spontaneous
  Country: JP (occurrence: JP)
  Receive Date: 20210716
  Receipt Date: 20210803
  Transmission Date: 20211014
  Serious: Yes (Other)
  Sender: FDA-Public Use
  Company Number: NVSJ2021JP010743

PATIENT
  Age: 75 Year
  Sex: Male

DRUGS (2)
  1. BEOVU [Suspect]
     Active Substance: BROLUCIZUMAB-DBLL
     Dosage: 6 MG
     Route: 031
     Dates: start: 20210506, end: 20210506
  2. BEOVU [Suspect]
     Active Substance: BROLUCIZUMAB-DBLL
     Indication: AGE-RELATED MACULAR DEGENERATION
     Dosage: 6 MG
     Route: 031
     Dates: start: 20210410, end: 20210410

REACTIONS (10)
  - Visual acuity reduced [Unknown]
  - Anterior chamber inflammation [Unknown]
  - Glaucoma [Unknown]
  - Ocular hyperaemia [Recovering/Resolving]
  - Intraocular pressure increased [Recovering/Resolving]
  - Borderline glaucoma [Unknown]
  - Uveitis [Unknown]
  - Eye pain [Recovering/Resolving]
  - Retinal perivascular sheathing [Recovering/Resolving]
  - Vitreous opacities [Unknown]

NARRATIVE: CASE EVENT DATE: 20210506
